APPROVED DRUG PRODUCT: LEVETIRACETAM
Active Ingredient: LEVETIRACETAM
Strength: 250MG
Dosage Form/Route: TABLET;ORAL
Application: A076920 | Product #001 | TE Code: AB
Applicant: SENORES PHARMACEUTICALS INC
Approved: Jan 15, 2009 | RLD: No | RS: No | Type: RX